FAERS Safety Report 7099627-0 (Version None)
Quarter: 2010Q4

REPORT INFORMATION
  Report Type: 
  Country: None (occurrence: None)
  Receive Date: 20101104
  Receipt Date: 20101025
  Transmission Date: 20110411
  Serious: Yes (Death, Life-Threatening, Hospitalization, Other)
  Sender: FDA-Public Use
  Company Number: 2010AC000119

PATIENT
  Age: 79 Year
  Sex: Female

DRUGS (33)
  1. DIGOXIN [Suspect]
     Dosage: (0.125 MG; QD; PO) (0.25 MG; QD; PO)
     Route: 048
     Dates: end: 20080505
  2. CYCLOPHOSPHAMIDE [Concomitant]
  3. ADRIAMYCIN PFS [Concomitant]
  4. VINCRISTINE [Concomitant]
  5. PREDNISONE [Concomitant]
  6. RITUXAN [Concomitant]
  7. LABETALOL HCL [Concomitant]
  8. PAXIL [Concomitant]
  9. PREMARIN [Concomitant]
  10. MYCELEX [Concomitant]
  11. ATIVAN [Concomitant]
  12. SORIATANE [Concomitant]
  13. POTASSIUM CHLORIDE [Concomitant]
  14. ATENOLOL [Concomitant]
  15. BISACODYL [Concomitant]
  16. KEFLEX [Concomitant]
  17. COLACE [Concomitant]
  18. LASIX [Concomitant]
  19. SILVADENE [Concomitant]
  20. LISINOPRIL [Concomitant]
  21. LORAZEPAM [Concomitant]
  22. COUMADIN [Concomitant]
  23. PROTONIX [Concomitant]
  24. PRILOSEC [Concomitant]
  25. ERYTHROMYCIN [Concomitant]
  26. LOVENOX [Concomitant]
  27. CEFTRIAXONE [Concomitant]
  28. MOXIFLOXACIN [Concomitant]
  29. FLAGYL [Concomitant]
  30. MEGACE [Concomitant]
  31. AZITHROMYCIN [Concomitant]
  32. AVELOX [Concomitant]
  33. MUCINEX [Concomitant]

REACTIONS (49)
  - ABDOMINAL DISTENSION [None]
  - ABSCESS [None]
  - AORTIC ANEURYSM [None]
  - AORTIC ARTERIOSCLEROSIS [None]
  - AORTIC VALVE INCOMPETENCE [None]
  - ATRIAL FIBRILLATION [None]
  - BLOOD ALKALINE PHOSPHATASE INCREASED [None]
  - BLOOD LACTATE DEHYDROGENASE INCREASED [None]
  - BRONCHITIS [None]
  - CARDIAC FAILURE CONGESTIVE [None]
  - CARDIOMEGALY [None]
  - CELLULITIS [None]
  - CEREBRAL ISCHAEMIA [None]
  - CEREBROVASCULAR ACCIDENT [None]
  - CHRONIC OBSTRUCTIVE PULMONARY DISEASE [None]
  - COMPRESSION FRACTURE [None]
  - DYSPNOEA [None]
  - EMBOLIC CEREBRAL INFARCTION [None]
  - FALL [None]
  - FATIGUE [None]
  - HEMIPARESIS [None]
  - HYPERTENSION [None]
  - HYPOGEUSIA [None]
  - LACERATION [None]
  - LEFT ATRIAL DILATATION [None]
  - LETHARGY [None]
  - LUNG NEOPLASM [None]
  - MITRAL VALVE CALCIFICATION [None]
  - MITRAL VALVE INCOMPETENCE [None]
  - NAUSEA [None]
  - NEPHROLITHIASIS [None]
  - NON-HODGKIN'S LYMPHOMA [None]
  - OEDEMA PERIPHERAL [None]
  - ORAL CANDIDIASIS [None]
  - ORTHOSTATIC HYPOTENSION [None]
  - PLEURAL EFFUSION [None]
  - PNEUMONIA [None]
  - PNEUMONIA ASPIRATION [None]
  - PULMONARY OEDEMA [None]
  - RIB FRACTURE [None]
  - SLEEP DISORDER [None]
  - SQUAMOUS CELL CARCINOMA [None]
  - SUPERINFECTION [None]
  - THERAPEUTIC AGENT TOXICITY [None]
  - TRICUSPID VALVE INCOMPETENCE [None]
  - URETERIC OBSTRUCTION [None]
  - UTERINE CANCER [None]
  - VOMITING [None]
  - WRIST FRACTURE [None]
